FAERS Safety Report 8053504-7 (Version None)
Quarter: 2011Q4

REPORT INFORMATION
  Report Type: 
  Country: None (occurrence: None)
  Receive Date: 20111213
  Receipt Date: 20111004
  Transmission Date: 20120403
  Serious: No
  Sender: FDA-Public Use
  Company Number: 2011SP047020

PATIENT
  Sex: Male

DRUGS (4)
  1. SAPHRIS [Suspect]
     Indication: GENERALISED ANXIETY DISORDER
     Dosage: 5 MG; SL
     Route: 060
  2. SAPHRIS [Suspect]
     Indication: DEPRESSION
     Dosage: 5 MG; SL
     Route: 060
  3. LORAZEPAM [Concomitant]
  4. PAXIL [Concomitant]

REACTIONS (4)
  - SURGERY [None]
  - INAPPROPRIATE SCHEDULE OF DRUG ADMINISTRATION [None]
  - DRUG EFFECT DECREASED [None]
  - LETHARGY [None]
